FAERS Safety Report 7198935-2 (Version None)
Quarter: 2010Q4

REPORT INFORMATION
  Report Type: 
  Country: None (occurrence: None)
  Receive Date: 20101227
  Receipt Date: 20101217
  Transmission Date: 20110411
  Serious: Yes (Hospitalization)
  Sender: FDA-Public Use
  Company Number: JP-ALLERGAN-1016665US

PATIENT
  Age: 49 Year
  Sex: Female

DRUGS (6)
  1. BOTOX INJECTION 100 [Suspect]
     Indication: TORTICOLLIS
     Dosage: 100 UNITS, SINGLE
     Route: 030
     Dates: start: 20100108, end: 20100108
  2. BOTOX INJECTION 100 [Suspect]
     Dosage: 60 UNITS, SINGLE
     Route: 030
     Dates: start: 20091109, end: 20091109
  3. BOTOX INJECTION 100 [Suspect]
     Dosage: 150 UNITS, SINGLE
     Route: 030
     Dates: start: 20100408, end: 20100408
  4. ARTANE [Concomitant]
     Indication: TORTICOLLIS
     Dosage: 4 MG, QD
     Route: 048
     Dates: start: 20091209
  5. ARTANE [Concomitant]
     Dosage: UNK
  6. DEPAS [Concomitant]
     Indication: TORTICOLLIS
     Dosage: 4 MG, QD
     Route: 048
     Dates: start: 20091209

REACTIONS (2)
  - DYSPNOEA [None]
  - PNEUMOTHORAX [None]
